FAERS Safety Report 26058000 (Version 1)
Quarter: 2025Q4

REPORT INFORMATION
  Report Type: Spontaneous
  Country: US (occurrence: US)
  Receive Date: 20251118
  Receipt Date: 20251118
  Transmission Date: 20260117
  Serious: No
  Sender: ELI LILLY AND COMPANY
  Company Number: US-ELI_LILLY_AND_COMPANY-US202510030516

PATIENT

DRUGS (1)
  1. AMYVID [Suspect]
     Active Substance: FLORBETAPIR F-18
     Indication: Product used for unknown indication
     Dosage: 5 ML, UNKNOWN (TWO SYRINGES WITH A VOLUME OF 5 MLS IN EACH)
     Route: 065
     Dates: start: 20251021, end: 20251021

REACTIONS (2)
  - Injection site pain [Recovered/Resolved]
  - Wrong technique in product usage process [Unknown]

NARRATIVE: CASE EVENT DATE: 20251021
